FAERS Safety Report 5926605-4 (Version None)
Quarter: 2008Q4

REPORT INFORMATION
  Report Type: 
  Country: None (occurrence: None)
  Receive Date: 20081022
  Receipt Date: 20081019
  Transmission Date: 20090506
  Serious: Yes (Hospitalization, Other)
  Sender: FDA-Public Use
  Company Number: A0750294A

PATIENT
  Age: 60 Year
  Sex: Female
  Weight: 60.5 kg

DRUGS (8)
  1. LAMICTAL [Suspect]
     Indication: BIPOLAR DISORDER
     Dosage: 100MG PER DAY
     Route: 048
     Dates: start: 20080101, end: 20080930
  2. GEODON [Suspect]
     Indication: BIPOLAR DISORDER
     Dosage: 20MG AT NIGHT
     Route: 048
     Dates: start: 20070321, end: 20080930
  3. NEURONTIN [Suspect]
     Indication: BIPOLAR DISORDER
     Route: 048
     Dates: end: 20080930
  4. PRIMIDONE [Concomitant]
     Dosage: 250MG THREE TIMES PER DAY
  5. XANAX [Concomitant]
     Dosage: .25MG AT NIGHT
     Dates: start: 20050823
  6. SYNTHROID [Concomitant]
  7. HYDROCHLOROTHIAZIDE [Concomitant]
     Dosage: 25MG TWICE PER DAY
  8. TIZANIDINE HCL [Concomitant]
     Dosage: 4MG AT NIGHT
     Dates: start: 20060523

REACTIONS (4)
  - BRADYCARDIA [None]
  - BUNDLE BRANCH BLOCK LEFT [None]
  - HEART RATE DECREASED [None]
  - SYNCOPE [None]
